FAERS Safety Report 20166442 (Version 1)
Quarter: 2021Q4

REPORT INFORMATION
  Report Type: Spontaneous
  Country: DE (occurrence: DE)
  Receive Date: 20211209
  Receipt Date: 20211209
  Transmission Date: 20220303
  Serious: Yes (Congenital Anomaly)
  Sender: FDA-Public Use
  Company Number: DE-EMBRYOTOX-202109663

PATIENT
  Age: 1 Day
  Sex: Female

DRUGS (9)
  1. INDAPAMIDE [Suspect]
     Active Substance: INDAPAMIDE
     Indication: Hypertension
     Dosage: 2.5 MILLIGRAM DAILY; ADDITIONAL INFO : 0. - 15. GESTATIONAL WEEK
     Route: 064
     Dates: start: 20201116, end: 20210301
  2. EXFORGE [Suspect]
     Active Substance: AMLODIPINE BESYLATE\VALSARTAN
     Indication: Hypertension
     Dosage: 10 [MG/D ] / 320 [MG/D ] 2 SEPARATED DOSES , UNIT DOSE : 320 MG , ADDITIONAL INFO : 0. - 15. GESTATI
     Route: 064
     Dates: start: 20201116, end: 20210301
  3. PHENPROCOUMON [Suspect]
     Active Substance: PHENPROCOUMON
     Indication: Thrombosis prophylaxis
     Dosage: 3 MILLIGRAM DAILY; ADDITIONAL INFO : 0. - 15. GESTATIONAL WEEK
     Route: 064
     Dates: start: 20201116, end: 20210301
  4. FORMOTEROL [Concomitant]
     Active Substance: FORMOTEROL
     Indication: Product used for unknown indication
     Dosage: ADDITIONAL INFO : 0. - 31.6. GESTATIONAL WEEK
     Route: 064
     Dates: start: 20201116, end: 20210627
  5. QUETIAPINE FUMARATE [Concomitant]
     Active Substance: QUETIAPINE FUMARATE
     Indication: Post-traumatic stress disorder
     Dosage: 50 MILLIGRAM DAILY; ADDITIONAL INFO : 0. - 31.6. GESTATIONAL WEEK
     Route: 064
     Dates: start: 20201116, end: 20210627
  6. presinol mite [Concomitant]
     Indication: Hypertension
     Dosage: 250 MILLIGRAM DAILY;  2 SEPARATED DOSES , ADDITIONAL INFO : 15. - 31.6. GESTATIONAL WEEK
     Route: 064
     Dates: start: 20210301, end: 20210627
  7. INSULIN NOS [Concomitant]
     Active Substance: INSULIN NOS
     Indication: Gestational diabetes
     Dosage: ADDITIONAL INFO : 31.6. - 31.6. GESTATIONAL WEEK
     Route: 064
     Dates: start: 20210627, end: 20210627
  8. VENLAFAXINE [Concomitant]
     Active Substance: VENLAFAXINE HYDROCHLORIDE
     Indication: Post-traumatic stress disorder
     Dosage: 150 MILLIGRAM DAILY; ADDITIONAL INFO : 0. - 31.6. GESTATIONAL WEEK
     Route: 064
     Dates: start: 20201116, end: 20210627
  9. ENOXAPARIN BECAT [Concomitant]
     Indication: Thrombosis prophylaxis
     Dosage: 12000 IU (INTERNATIONAL UNIT) DAILY;   2 SEPARATED DOSES , ADDITIONAL INFO : 15. - 31.6. GESTATIONAL
     Route: 064
     Dates: start: 20210301, end: 20210627

REACTIONS (7)
  - Single umbilical artery [Not Recovered/Not Resolved]
  - Neonatal respiratory distress syndrome [Recovered/Resolved]
  - Dysmorphism [Unknown]
  - Premature baby [Recovered/Resolved]
  - Abnormal palmar/plantar creases [Unknown]
  - Limb reduction defect [Not Recovered/Not Resolved]
  - Foetal exposure during pregnancy [Unknown]

NARRATIVE: CASE EVENT DATE: 20201116
